FAERS Safety Report 7520159-7 (Version None)
Quarter: 2011Q2

REPORT INFORMATION
  Report Type: 
  Country: None (occurrence: None)
  Receive Date: 20110602
  Receipt Date: 20110523
  Transmission Date: 20111010
  Serious: Yes (Death, Hospitalization, Other)
  Sender: FDA-Public Use
  Company Number: JP-CELGENEUS-087-21880-10112253

PATIENT
  Sex: Male

DRUGS (29)
  1. MIYA BM [Concomitant]
     Indication: MULTIPLE MYELOMA
     Dosage: 3 GRAM
     Route: 048
     Dates: start: 20101017, end: 20101027
  2. OXINORM [Concomitant]
     Dosage: 1 GRAM
     Route: 048
     Dates: start: 20101025, end: 20101027
  3. OXINORM [Concomitant]
     Dosage: 5 MILLIGRAM
     Route: 048
     Dates: start: 20101029, end: 20101029
  4. HALOPERIDOL [Concomitant]
     Dosage: 1 MILLILITER
     Route: 041
     Dates: start: 20101028, end: 20101029
  5. ETODOLAC [Concomitant]
     Indication: MULTIPLE MYELOMA
     Dosage: 200 MILLIGRAM
     Route: 048
     Dates: start: 20101025, end: 20101025
  6. ZOMETA [Concomitant]
  7. TERPERAN [Concomitant]
  8. COLONEL [Concomitant]
  9. OXINORM [Concomitant]
     Indication: MULTIPLE MYELOMA
     Dosage: .5 GRAM
     Route: 048
     Dates: start: 20101024, end: 20101029
  10. MORPHINE HCL ELIXIR [Concomitant]
     Indication: MULTIPLE MYELOMA
     Dosage: 30 MILLIGRAM
     Route: 051
     Dates: start: 20101028, end: 20101028
  11. TERPERAN [Concomitant]
     Indication: MULTIPLE MYELOMA
     Dosage: 2 MILLILITER
     Route: 041
     Dates: start: 20101028, end: 20101029
  12. REVLIMID [Suspect]
     Indication: MULTIPLE MYELOMA
     Dosage: 10 MILLIGRAM
     Route: 048
     Dates: start: 20101021, end: 20101028
  13. VALGANCICLOVIR [Concomitant]
     Indication: CYTOMEGALOVIRUS INFECTION
     Dosage: 900 MILLIGRAM
     Route: 048
     Dates: start: 20101020, end: 20101027
  14. ENSURE LIQUID [Concomitant]
     Indication: MULTIPLE MYELOMA
     Dosage: 500 MILLILITER
     Route: 048
     Dates: start: 20101007, end: 20101027
  15. COLONEL [Concomitant]
     Indication: MULTIPLE MYELOMA
     Dosage: 1.8 GRAM
     Route: 048
     Dates: start: 20101007, end: 20101023
  16. OXINORM [Concomitant]
     Dosage: 2 GRAM
     Route: 048
     Dates: start: 20101028, end: 20101028
  17. PROCHLORPERAZINE [Concomitant]
     Dosage: 10 MILLIGRAM
     Route: 048
     Dates: start: 20101026, end: 20101028
  18. ENSURE LIQUID [Concomitant]
  19. ATARAX [Concomitant]
     Indication: MULTIPLE MYELOMA
     Dosage: 25 MILLIGRAM
     Route: 048
     Dates: start: 20101024, end: 20101024
  20. HALOPERIDOL [Concomitant]
     Indication: MULTIPLE MYELOMA
     Dosage: .75 MILLIGRAM
     Route: 048
     Dates: start: 20101025, end: 20101027
  21. MIYA BM [Concomitant]
     Dosage: 2 GRAM
     Route: 048
     Dates: start: 20101028, end: 20101029
  22. ETODOLAC [Concomitant]
     Dosage: 400 MILLIGRAM
     Route: 048
     Dates: start: 20101026, end: 20101028
  23. PROCHLORPERAZINE [Concomitant]
     Indication: MULTIPLE MYELOMA
     Dosage: 5 MILLIGRAM
     Route: 048
     Dates: start: 20101025, end: 20101025
  24. C-PARA [Concomitant]
  25. ZOMETA [Concomitant]
     Indication: MULTIPLE MYELOMA
     Dosage: 4 MILLIGRAM
     Route: 051
     Dates: start: 20101026, end: 20101026
  26. MORPHINE HCL ELIXIR [Concomitant]
  27. VALGANCICLOVIR [Concomitant]
     Indication: PLATELET COUNT DECREASED
  28. ATARAX [Concomitant]
  29. C-PARA [Concomitant]
     Indication: MULTIPLE MYELOMA
     Dosage: 2 MILLILITER
     Route: 041
     Dates: start: 20101025, end: 20101029

REACTIONS (7)
  - MULTIPLE MYELOMA [None]
  - BLOOD SODIUM DECREASED [None]
  - BLOOD UREA INCREASED [None]
  - PLATELET COUNT DECREASED [None]
  - BLOOD POTASSIUM INCREASED [None]
  - BLOOD CHLORIDE DECREASED [None]
  - ANAEMIA [None]
